FAERS Safety Report 18845954 (Version 1)
Quarter: 2021Q1

REPORT INFORMATION
  Report Type: Spontaneous
  Country: US (occurrence: US)
  Receive Date: 20210204
  Receipt Date: 20210204
  Transmission Date: 20210419
  Serious: Yes (Death)
  Sender: FDA-Public Use
  Company Number: None

PATIENT
  Sex: Male

DRUGS (6)
  1. LOSARTAN. [Concomitant]
     Active Substance: LOSARTAN
  2. ROSUVASTATIN. [Concomitant]
     Active Substance: ROSUVASTATIN
  3. FENOFIBRATE. [Concomitant]
     Active Substance: FENOFIBRATE
  4. HYDRALZINE [Concomitant]
  5. IMATINIB MES [Suspect]
     Active Substance: IMATINIB MESYLATE
     Indication: NEOPLASM
     Route: 048
  6. METOPROLOL TARTRATE. [Concomitant]
     Active Substance: METOPROLOL TARTRATE

REACTIONS (1)
  - Death [None]
